FAERS Safety Report 5220486-2 (Version None)
Quarter: 2007Q1

REPORT INFORMATION
  Report Type: 
  Country: None (occurrence: None)
  Receive Date: 20070125
  Receipt Date: 20070125
  Transmission Date: 20070707
  Serious: Yes (Hospitalization)
  Sender: FDA-Public Use
  Company Number: None

PATIENT
  Sex: Female
  Weight: 102.0593 kg

DRUGS (6)
  1. TORSEMIDE [Suspect]
     Indication: HYPERTENSION
     Dosage: PO STAR 2 WEEKS PRIOR TO ADMISSION
     Route: 048
  2. DIOVAN [Concomitant]
  3. TOPROL-XL [Concomitant]
  4. POTASSIUM CHLORIDE [Concomitant]
  5. ASPIRIN [Concomitant]
  6. FOLIC ACID [Concomitant]

REACTIONS (1)
  - DIZZINESS [None]
